FAERS Safety Report 16466957 (Version 6)
Quarter: 2023Q1

REPORT INFORMATION
  Report Type: Report from Study
  Country: US (occurrence: US)
  Receive Date: 20190624
  Receipt Date: 20230222
  Transmission Date: 20230418
  Serious: Yes (Hospitalization)
  Sender: FDA-Public Use
  Company Number: US-SHIRE-US201920012

PATIENT
  Age: 52 Year
  Sex: Female

DRUGS (12)
  1. TEDUGLUTIDE [Suspect]
     Active Substance: TEDUGLUTIDE
     Indication: Short-bowel syndrome
     Dosage: UNK
     Route: 058
     Dates: start: 20181015, end: 20190611
  2. TEDUGLUTIDE [Suspect]
     Active Substance: TEDUGLUTIDE
     Indication: Short-bowel syndrome
     Dosage: UNK
     Route: 058
     Dates: start: 20181015, end: 20190611
  3. TEDUGLUTIDE [Suspect]
     Active Substance: TEDUGLUTIDE
     Indication: Short-bowel syndrome
     Dosage: UNK
     Route: 058
     Dates: start: 20181015, end: 20190611
  4. TEDUGLUTIDE [Suspect]
     Active Substance: TEDUGLUTIDE
     Indication: Short-bowel syndrome
     Dosage: UNK
     Route: 058
     Dates: start: 20181015, end: 20190611
  5. TEDUGLUTIDE [Suspect]
     Active Substance: TEDUGLUTIDE
     Dosage: 2.3 MILLIGRAM, Q3WEEKS
     Route: 058
     Dates: start: 20180410, end: 20220103
  6. TEDUGLUTIDE [Suspect]
     Active Substance: TEDUGLUTIDE
     Dosage: 2.3 MILLIGRAM, Q3WEEKS
     Route: 058
     Dates: start: 20180410, end: 20220103
  7. TEDUGLUTIDE [Suspect]
     Active Substance: TEDUGLUTIDE
     Dosage: 2.3 MILLIGRAM, Q3WEEKS
     Route: 058
     Dates: start: 20180410, end: 20220103
  8. TEDUGLUTIDE [Suspect]
     Active Substance: TEDUGLUTIDE
     Dosage: 2.3 MILLIGRAM, Q3WEEKS
     Route: 058
     Dates: start: 20180410, end: 20220103
  9. TEDUGLUTIDE [Suspect]
     Active Substance: TEDUGLUTIDE
     Dosage: 2.3 MILLIGRAM, 3/WEEK
     Route: 058
     Dates: start: 20180410
  10. TEDUGLUTIDE [Suspect]
     Active Substance: TEDUGLUTIDE
     Dosage: 2.3 MILLIGRAM, 3/WEEK
     Route: 058
     Dates: start: 20180410
  11. TEDUGLUTIDE [Suspect]
     Active Substance: TEDUGLUTIDE
     Dosage: 2.3 MILLIGRAM, 3/WEEK
     Route: 058
     Dates: start: 20180410
  12. TEDUGLUTIDE [Suspect]
     Active Substance: TEDUGLUTIDE
     Dosage: 2.3 MILLIGRAM, 3/WEEK
     Route: 058
     Dates: start: 20180410

REACTIONS (8)
  - Concussion [Recovering/Resolving]
  - Diarrhoea [Unknown]
  - Constipation [Unknown]
  - Malaise [Unknown]
  - Obstruction [Unknown]
  - Abdominal pain [Unknown]
  - Nausea [Unknown]
  - Insurance issue [Unknown]

NARRATIVE: CASE EVENT DATE: 20211013
